FAERS Safety Report 8596460-5 (Version None)
Quarter: 2012Q3

REPORT INFORMATION
  Report Type: 
  Country: None (occurrence: None)
  Receive Date: 20120815
  Receipt Date: 20120806
  Transmission Date: 20120928
  Serious: Yes (Hospitalization, Other)
  Sender: FDA-Public Use
  Company Number: US-ACTELION-A-NJ2012-65206

PATIENT
  Age: 80 Year
  Sex: Female

DRUGS (5)
  1. DIGOXIN [Concomitant]
  2. PLAVIX [Concomitant]
  3. LASIX [Concomitant]
  4. TRACLEER [Suspect]
     Indication: PULMONARY ARTERIAL HYPERTENSION
     Dosage: UNK
     Route: 048
     Dates: start: 20081101
  5. COUMADIN [Concomitant]

REACTIONS (4)
  - LUNG INFILTRATION [None]
  - BRONCHOSCOPY [None]
  - LUNG INFECTION [None]
  - MYCOBACTERIUM AVIUM COMPLEX INFECTION [None]
